FAERS Safety Report 12535366 (Version 1)
Quarter: 2016Q3

REPORT INFORMATION
  Report Type: Spontaneous
  Country: FR (occurrence: FR)
  Receive Date: 20160707
  Receipt Date: 20160707
  Transmission Date: 20161109
  Serious: Yes (Death, Other)
  Sender: FDA-Public Use
  Company Number: FR-009507513-2003-109094-NL

PATIENT

DRUGS (2)
  1. ORGARAN [Suspect]
     Active Substance: DANAPAROID SODIUM
     Indication: THROMBOSIS PROPHYLAXIS
  2. ORGARAN [Suspect]
     Active Substance: DANAPAROID SODIUM
     Indication: DEEP VEIN THROMBOSIS

REACTIONS (2)
  - Ischaemia [Fatal]
  - Septic shock [Fatal]
